FAERS Safety Report 14324371 (Version 1)
Quarter: 2017Q4

REPORT INFORMATION
  Report Type: Spontaneous
  Country: US (occurrence: US)
  Receive Date: 20171222
  Receipt Date: 20171222
  Transmission Date: 20180321
  Serious: Yes (Other)
  Sender: FDA-Public Use
  Company Number: None

PATIENT
  Age: 63 Year
  Sex: Male
  Weight: 99.7 kg

DRUGS (2)
  1. TOPAMAX [Suspect]
     Active Substance: TOPIRAMATE
     Route: 048
     Dates: start: 20170906
  2. TOPIRAMATE 25MG [Suspect]
     Active Substance: TOPIRAMATE
     Route: 048
     Dates: end: 201709

REACTIONS (3)
  - Therapy cessation [None]
  - Pruritus [None]
  - Dysgeusia [None]

NARRATIVE: CASE EVENT DATE: 20170906
